FAERS Safety Report 17824070 (Version 2)
Quarter: 2020Q2

REPORT INFORMATION
  Report Type: Spontaneous
  Country: US (occurrence: US)
  Receive Date: 20200526
  Receipt Date: 20200609
  Transmission Date: 20200714
  Serious: No
  Sender: FDA-Public Use
  Company Number: US-GLAXOSMITHKLINE-US2020086713

PATIENT
  Age: 73 Year
  Sex: Female

DRUGS (1)
  1. NUCALA [Suspect]
     Active Substance: MEPOLIZUMAB
     Indication: EOSINOPHILIC GRANULOMATOSIS WITH POLYANGIITIS
     Dosage: 300 MG, CYC, ONCE A MONTH
     Route: 065

REACTIONS (5)
  - Product dose omission [Recovered/Resolved]
  - Incorrect dose administered [Unknown]
  - Circumstance or information capable of leading to medication error [Unknown]
  - Malaise [Unknown]
  - Social problem [Unknown]

NARRATIVE: CASE EVENT DATE: 202002
